FAERS Safety Report 6637695-8 (Version None)
Quarter: 2010Q1

REPORT INFORMATION
  Report Type: 
  Country: None (occurrence: None)
  Receive Date: 20100315
  Receipt Date: 20100315
  Transmission Date: 20100710
  Serious: Yes (Other)
  Sender: FDA-Public Use
  Company Number: None

PATIENT
  Age: 42 Year
  Sex: Female
  Weight: 80.7403 kg

DRUGS (1)
  1. THYROID TAB [Suspect]
     Indication: HYPOTHYROIDISM
     Dosage: 60 MG ONCE DAILY PO
     Route: 048
     Dates: start: 20030102, end: 20100201

REACTIONS (4)
  - ALOPECIA [None]
  - CHEST PAIN [None]
  - MALAISE [None]
  - MIGRAINE [None]
